FAERS Safety Report 6871089-5 (Version None)
Quarter: 2010Q3

REPORT INFORMATION
  Report Type: 
  Country: None (occurrence: None)
  Receive Date: 20100721
  Receipt Date: 20100708
  Transmission Date: 20110219
  Serious: Yes (Hospitalization, Other)
  Sender: FDA-Public Use
  Company Number: CL-170-2010

PATIENT
  Age: 41 Year
  Sex: Male

DRUGS (1)
  1. KETOROLAC UNK [Suspect]
     Indication: ANALGESIC THERAPY
     Dosage: LOADING DOSE IV
     Route: 042

REACTIONS (2)
  - ANAPHYLACTOID REACTION [None]
  - TACHYCARDIA [None]
